FAERS Safety Report 20429044 (Version 1)
Quarter: 2022Q1

REPORT INFORMATION
  Report Type: Spontaneous
  Country: US (occurrence: None)
  Receive Date: 20220203
  Receipt Date: 20220203
  Transmission Date: 20220423
  Serious: Yes (Other)
  Sender: FDA-Public Use
  Company Number: None

PATIENT
  Age: 50 Year
  Sex: Female
  Weight: 83 kg

DRUGS (4)
  1. RENFLEXIS [Suspect]
     Active Substance: INFLIXIMAB-ABDA
     Indication: Coeliac disease
     Dosage: 800MG EVERY 4 WEEKS ?
     Route: 042
  2. RENFLEXIS [Suspect]
     Active Substance: INFLIXIMAB-ABDA
     Indication: Arthropathy
  3. HUMIRA [Suspect]
     Active Substance: ADALIMUMAB
     Indication: Coeliac disease
     Dosage: 40 MG  EVERY 2 WEEKS?
  4. HUMIRA [Suspect]
     Active Substance: ADALIMUMAB
     Indication: Arthropathy

REACTIONS (9)
  - Pruritus [None]
  - Dyspnoea [None]
  - Cough [None]
  - Anaphylactic reaction [None]
  - Arthralgia [None]
  - Nausea [None]
  - Abdominal pain [None]
  - Muscle spasms [None]
  - Diarrhoea [None]

NARRATIVE: CASE EVENT DATE: 20210911
